FAERS Safety Report 4846091-5 (Version None)
Quarter: 2005Q4

REPORT INFORMATION
  Report Type: 
  Country: None (occurrence: None)
  Receive Date: 20051118
  Receipt Date: 20051118
  Transmission Date: 20060501
  Serious: Yes (Other)
  Sender: FDA-Public Use
  Company Number: 2005158502

PATIENT
  Age: 71 Year
  Sex: Male
  Weight: 83.9154 kg

DRUGS (5)
  1. ACCUPRIL [Suspect]
     Indication: HYPERTENSION
     Dosage: 40 MG (20 MG, BID INTERVAL: EVERY DAY), ORAL
     Route: 048
  2. CARDIZEM [Concomitant]
  3. PROTONIX [Concomitant]
  4. ZOCOR [Concomitant]
  5. ALLOPURINOL [Concomitant]

REACTIONS (4)
  - DYSPHAGIA [None]
  - MUSCLE TIGHTNESS [None]
  - OESOPHAGEAL DISORDER [None]
  - SPEECH DISORDER [None]
